FAERS Safety Report 23188097 (Version 2)
Quarter: 2024Q1

REPORT INFORMATION
  Report Type: Spontaneous
  Country: US (occurrence: US)
  Receive Date: 20231115
  Receipt Date: 20240327
  Transmission Date: 20240410
  Serious: No
  Sender: FDA-Public Use
  Company Number: US-PFIZER INC-202300358221

PATIENT
  Age: 53 Year
  Sex: Female

DRUGS (1)
  1. OXBRYTA [Suspect]
     Active Substance: VOXELOTOR
     Dosage: 500 MG., 3 TABLETS, ONCE DAILY, ORALLY.
     Route: 048
     Dates: start: 20210317, end: 202312

REACTIONS (5)
  - Fatigue [Recovering/Resolving]
  - Pain [Unknown]
  - Neck pain [Unknown]
  - Arthralgia [Unknown]
  - Chest discomfort [Unknown]
